FAERS Safety Report 23415456 (Version 1)
Quarter: 2024Q1

REPORT INFORMATION
  Report Type: Spontaneous
  Country: GB (occurrence: GB)
  Receive Date: 20240118
  Receipt Date: 20240118
  Transmission Date: 20240409
  Serious: Yes (Death)
  Sender: FDA-Public Use
  Company Number: None

PATIENT
  Sex: Male

DRUGS (7)
  1. CARBAMAZEPINE [Suspect]
     Active Substance: CARBAMAZEPINE
     Indication: Ill-defined disorder
     Dosage: 1 DOSAGE FORM, BID
     Route: 065
     Dates: start: 20231113, end: 20231211
  2. AMITRIPTYLINE HYDROCHLORIDE [Suspect]
     Active Substance: AMITRIPTYLINE HYDROCHLORIDE
     Indication: Ill-defined disorder
     Dosage: UNK (TAKE TWO AT NIGHT)
     Route: 065
     Dates: start: 20230817, end: 20231228
  3. PENICILLIN V [Suspect]
     Active Substance: PENICILLIN V
     Indication: Ill-defined disorder
     Dosage: 4 DOSAGE FORM, BID
     Route: 065
     Dates: start: 20231204, end: 20231214
  4. PREGABALIN [Suspect]
     Active Substance: PREGABALIN
     Indication: Ill-defined disorder
     Dosage: 1 DOSAGE FORM, TID
     Route: 065
     Dates: start: 20230817, end: 20231211
  5. VALPROATE SODIUM [Suspect]
     Active Substance: VALPROATE SODIUM
     Indication: Ill-defined disorder
     Dosage: UNK (2 IN MORNING, 1 IN NIGHT)
     Route: 065
     Dates: start: 20230817, end: 20231228
  6. ZOPICLONE [Suspect]
     Active Substance: ZOPICLONE
     Indication: Ill-defined disorder
     Dosage: UNK, (1 O.N.)
     Route: 065
     Dates: start: 20230817, end: 20231228
  7. DIBUCAINE HYDROCHLORIDE\PREDNISOLONE [Suspect]
     Active Substance: DIBUCAINE HYDROCHLORIDE\PREDNISOLONE
     Indication: Ill-defined disorder
     Dosage: UNK (APPLY TWICE DAILY AFTER OPENING BOWELS TO TRREA)
     Route: 065
     Dates: start: 20231005, end: 20231012

REACTIONS (1)
  - Toxic epidermal necrolysis [Fatal]

NARRATIVE: CASE EVENT DATE: 20231229
